FAERS Safety Report 4805686-5 (Version None)
Quarter: 2005Q4

REPORT INFORMATION
  Report Type: 
  Country: None (occurrence: None)
  Receive Date: 20051021
  Receipt Date: 20050831
  Transmission Date: 20060501
  Serious: Yes (Hospitalization)
  Sender: FDA-Public Use
  Company Number: DE-ROCHE-416049

PATIENT
  Age: 38 Year
  Sex: Female

DRUGS (9)
  1. MYCOPHENOLATE MOFETIL [Suspect]
     Route: 048
     Dates: start: 20040526
  2. TACROLIMUS [Suspect]
     Route: 048
     Dates: start: 20040526
  3. PREDNISOLONE [Suspect]
     Route: 048
     Dates: start: 20040526
  4. PREDNISOLONE [Suspect]
     Route: 048
  5. COTRIM DS [Concomitant]
  6. QUERTO [Concomitant]
  7. NORVASC [Concomitant]
  8. ACYCLOVIR [Concomitant]
  9. REDUCTO [Concomitant]

REACTIONS (7)
  - BLOOD CREATININE INCREASED [None]
  - DRUG TOXICITY [None]
  - FOOT AMPUTATION [None]
  - GANGRENE [None]
  - STENOTROPHOMONAS INFECTION [None]
  - TRANSPLANT REJECTION [None]
  - TREATMENT NONCOMPLIANCE [None]
